FAERS Safety Report 16110500 (Version 4)
Quarter: 2019Q3

REPORT INFORMATION
  Report Type: Spontaneous
  Country: NL (occurrence: NL)
  Receive Date: 20190325
  Receipt Date: 20190927
  Transmission Date: 20191004
  Serious: Yes (Death, Hospitalization, Other)
  Sender: FDA-Public Use
  Company Number: NL-009507513-1806NLD001656

PATIENT
  Age: 52 Year
  Sex: Female

DRUGS (7)
  1. PREVYMIS [Suspect]
     Active Substance: LETERMOVIR
     Indication: ANTIVIRAL PROPHYLAXIS
     Dosage: 2 TABLETS OF 240 MG PER DAY
     Route: 048
     Dates: start: 201806, end: 201810
  2. PREVYMIS [Suspect]
     Active Substance: LETERMOVIR
     Dosage: 2X28 TABLETS
     Route: 048
     Dates: start: 2018
  3. PREVYMIS [Suspect]
     Active Substance: LETERMOVIR
     Dosage: 28 TABLETS
     Route: 048
     Dates: start: 2018
  4. PREVYMIS [Suspect]
     Active Substance: LETERMOVIR
     Dosage: 3X28 TABLETS
     Route: 048
     Dates: start: 2018
  5. PREVYMIS [Suspect]
     Active Substance: LETERMOVIR
     Dosage: 14 DAYS OF TREATMENT
     Route: 048
     Dates: start: 2018
  6. PREVYMIS [Suspect]
     Active Substance: LETERMOVIR
     Dosage: 28 TABLETS
     Route: 048
     Dates: start: 2018
  7. PREVYMIS [Suspect]
     Active Substance: LETERMOVIR
     Dosage: 28 TABLETS
     Route: 048
     Dates: start: 2018

REACTIONS (5)
  - Drug resistance [Not Recovered/Not Resolved]
  - Product use issue [Unknown]
  - Hepatic cirrhosis [Fatal]
  - Cytomegalovirus infection [Not Recovered/Not Resolved]
  - Off label use [Unknown]

NARRATIVE: CASE EVENT DATE: 2018
